FAERS Safety Report 7290115-5 (Version None)
Quarter: 2011Q1

REPORT INFORMATION
  Report Type: 
  Country: None (occurrence: None)
  Receive Date: 20110202
  Receipt Date: 20110124
  Transmission Date: 20110831
  Serious: Yes (Other)
  Sender: FDA-Public Use
  Company Number: LEO-2010-01168

PATIENT
  Age: 53 Year
  Sex: Female
  Weight: 129 kg

DRUGS (13)
  1. TACLONEX [Suspect]
     Indication: PSORIASIS
     Dosage: (AT BEDTIME), TOPICAL
     Route: 061
     Dates: start: 20101201, end: 20101213
  2. PRILOSEC (OMEPRAZOLE) [Concomitant]
  3. CENTRUM SILVER (ASCORBIC ACID, TOCOPHERYL ACETATE, RETINOL, ZINC, CALC [Concomitant]
  4. VITAMIN D [Concomitant]
  5. VESICARE [Concomitant]
  6. COZAAR [Concomitant]
  7. SIMVASTATIN [Concomitant]
  8. ATENOLOL [Concomitant]
  9. ASPIRIN [Concomitant]
  10. METFORMIN ER (METFORMIN HYDROCHLORIDE) (TABLETS) [Concomitant]
  11. VAGISAN (SODIUM LACTATE, DL- LACTIC ACID) [Concomitant]
  12. AMITRIPTYLINE (AMITRIPTYLINE) [Concomitant]
  13. BACTRIM [Concomitant]

REACTIONS (3)
  - FOOD POISONING [None]
  - MALAISE [None]
  - OEDEMA PERIPHERAL [None]
